FAERS Safety Report 8542903-2 (Version None)
Quarter: 2012Q3

REPORT INFORMATION
  Report Type: 
  Country: None (occurrence: None)
  Receive Date: 20120716
  Receipt Date: 20120705
  Transmission Date: 20120928
  Serious: Yes (Death)
  Sender: FDA-Public Use
  Company Number: ADR-2012-01141

PATIENT
  Age: 46 Year
  Sex: Female

DRUGS (3)
  1. BACLOFEN [Suspect]
     Indication: PAIN
  2. BACLOFEN [Suspect]
     Indication: NEURITIS
  3. BACLOFEN [Suspect]
     Indication: POST PROCEDURAL COMPLICATION

REACTIONS (1)
  - SURGERY [None]
